FAERS Safety Report 4439931-5 (Version None)
Quarter: 2004Q3

REPORT INFORMATION
  Report Type: 
  Country: None (occurrence: None)
  Receive Date: 20040902
  Receipt Date: 20040826
  Transmission Date: 20050211
  Serious: Yes (Other)
  Sender: FDA-Public Use
  Company Number: PHEH2004US09281

PATIENT
  Age: 63 Year
  Sex: Female

DRUGS (6)
  1. DIOVAN [Suspect]
     Dosage: 160 MG, QD
     Route: 048
  2. LOZOL [Concomitant]
     Indication: DIURETIC THERAPY
  3. GLUCOVANCE [Concomitant]
  4. ZOCOR [Concomitant]
     Indication: HYPERCHOLESTEROLAEMIA
  5. VITAMINS NOS [Concomitant]
     Dosage: UNK, UNK
  6. CELEBREX [Suspect]
     Indication: TENDONITIS
     Route: 048
     Dates: start: 20040701

REACTIONS (2)
  - DYSGEUSIA [None]
  - SWOLLEN TONGUE [None]
